FAERS Safety Report 25351557 (Version 1)
Quarter: 2025Q2

REPORT INFORMATION
  Report Type: Report from Study
  Country: JP (occurrence: JP)
  Receive Date: 20250523
  Receipt Date: 20250523
  Transmission Date: 20250716
  Serious: Yes (Hospitalization)
  Sender: BIOCODEX
  Company Number: JP-BIOCODEX-2011-062

PATIENT
  Age: 5 Year
  Sex: Male
  Weight: 12.3 kg

DRUGS (12)
  1. STIRIPENTOL [Suspect]
     Active Substance: STIRIPENTOL
     Indication: Severe myoclonic epilepsy of infancy
     Route: 048
     Dates: start: 20100816, end: 20100823
  2. STIRIPENTOL [Suspect]
     Active Substance: STIRIPENTOL
     Indication: Severe myoclonic epilepsy of infancy
     Route: 048
     Dates: start: 20100823, end: 20100830
  3. STIRIPENTOL [Suspect]
     Active Substance: STIRIPENTOL
     Indication: Severe myoclonic epilepsy of infancy
     Route: 048
     Dates: start: 20100830, end: 20100906
  4. STIRIPENTOL [Suspect]
     Active Substance: STIRIPENTOL
     Indication: Severe myoclonic epilepsy of infancy
     Route: 048
     Dates: start: 20100913, end: 20101202
  5. STIRIPENTOL [Suspect]
     Active Substance: STIRIPENTOL
     Indication: Severe myoclonic epilepsy of infancy
     Route: 048
     Dates: start: 20101202, end: 20101227
  6. STIRIPENTOL [Suspect]
     Active Substance: STIRIPENTOL
     Indication: Severe myoclonic epilepsy of infancy
     Route: 048
     Dates: start: 20101227, end: 20110127
  7. STIRIPENTOL [Suspect]
     Active Substance: STIRIPENTOL
     Indication: Severe myoclonic epilepsy of infancy
     Dosage: 73MG/KG/DAY T.I.D.
     Route: 048
     Dates: start: 20110127, end: 20110228
  8. STIRIPENTOL [Suspect]
     Active Substance: STIRIPENTOL
     Indication: Severe myoclonic epilepsy of infancy
     Dosage: 63MG/KG/DAY T.I.D.
     Route: 048
     Dates: start: 20110228, end: 20110309
  9. STIRIPENTOL [Suspect]
     Active Substance: STIRIPENTOL
     Indication: Severe myoclonic epilepsy of infancy
     Dosage: 50MG/KG/DAY T.I.D.
     Route: 048
     Dates: start: 20110309
  10. DEPAKENE Fine Granules 40% [Concomitant]
     Indication: Product used for unknown indication
     Dosage: 300MG/B.I.D. AFTER BREAKFAST AND DINNER
     Route: 048
     Dates: start: 20100601
  11. MYSTAN Fine Granules 1% [Concomitant]
     Indication: Severe myoclonic epilepsy of infancy
     Dosage: 5MG/B.I.D. AFTER BREAKFAST AND DINNER
     Route: 048
     Dates: start: 20101202
  12. POTASSIUM BROMIDE [Concomitant]
     Active Substance: POTASSIUM BROMIDE
     Indication: Myoclonic epilepsy
     Dosage: 150MG/B.I.D. AFTER BREAKFAST AND DINNER
     Route: 048
     Dates: start: 20100203

REACTIONS (2)
  - Decreased appetite [Recovered/Resolved]
  - Condition aggravated [Recovered/Resolved]

NARRATIVE: CASE EVENT DATE: 20110306
